FAERS Safety Report 25864247 (Version 1)
Quarter: 2025Q3

REPORT INFORMATION
  Report Type: Spontaneous
  Country: US (occurrence: None)
  Receive Date: 20250929
  Receipt Date: 20250929
  Transmission Date: 20251020
  Serious: Yes (Hospitalization)
  Sender: FDA-CTU
  Company Number: None

PATIENT
  Age: 76 Year
  Sex: Female
  Weight: 61.9 kg

DRUGS (1)
  1. MIRVETUXIMAB SORAVTANSINE-GYNX [Suspect]
     Active Substance: MIRVETUXIMAB SORAVTANSINE-GYNX
     Indication: Female reproductive tract carcinoma in situ
     Route: 041
     Dates: start: 20250127, end: 20250825

REACTIONS (2)
  - Acute respiratory failure [None]
  - Oxygen saturation decreased [None]

NARRATIVE: CASE EVENT DATE: 20250906
